FAERS Safety Report 8775852 (Version 1)
Quarter: 2012Q4

REPORT INFORMATION
  Report Type: 
  Country: FR (occurrence: FR)
  Receive Date: 20120910
  Receipt Date: 20120910
  Transmission Date: 20130627
  Serious: Yes (Hospitalization)
  Sender: FDA-Public Use
  Company Number: FR-ROCHE-1120040

PATIENT
  Age: 60 Year
  Sex: Female

DRUGS (9)
  1. ROCEPHINE [Suspect]
     Indication: URINARY TRACT INFECTION
     Route: 042
  2. CELLCEPT [Concomitant]
  3. RAPAMUNE [Concomitant]
  4. BACTRIM [Concomitant]
  5. FOLINORAL [Concomitant]
  6. COZAAR [Concomitant]
  7. ESIDREX [Concomitant]
  8. HYPERIUM [Concomitant]
  9. AVLOCARDYL [Concomitant]

REACTIONS (5)
  - Headache [Recovered/Resolved]
  - Pyrexia [Recovered/Resolved]
  - Malaise [Recovered/Resolved]
  - Chest pain [Recovered/Resolved]
  - Cough [Recovered/Resolved]
